FAERS Safety Report 19647836 (Version 2)
Quarter: 2022Q1

REPORT INFORMATION
  Report Type: Report from Study
  Country: FR (occurrence: FR)
  Receive Date: 20210802
  Receipt Date: 20220224
  Transmission Date: 20220423
  Serious: Yes (Hospitalization, Other)
  Sender: FDA-Public Use
  Company Number: FR-BAYER-2021-185015

PATIENT
  Age: 47 Year
  Sex: Male

DRUGS (5)
  1. IOPROMIDE [Suspect]
     Active Substance: IOPROMIDE
  2. CEFTRIAXONE [Concomitant]
     Active Substance: CEFTRIAXONE
  3. ATOVAQUONE [Concomitant]
     Active Substance: ATOVAQUONE
  4. ACYCLOVIR [Concomitant]
     Active Substance: ACYCLOVIR
  5. VALACYCLOVIR HYDROCHLORIDE [Concomitant]
     Active Substance: VALACYCLOVIR HYDROCHLORIDE

REACTIONS (3)
  - Acute generalised exanthematous pustulosis [None]
  - Off label use [None]
  - Intentional product use issue [None]
